FAERS Safety Report 5315637-5 (Version None)
Quarter: 2007Q2

REPORT INFORMATION
  Report Type: 
  Country: None (occurrence: None)
  Receive Date: 20070503
  Receipt Date: 20070430
  Transmission Date: 20071010
  Serious: Yes (Death)
  Sender: FDA-Public Use
  Company Number: 2006UW24979

PATIENT
  Age: 20379 Day
  Sex: Male

DRUGS (1)
  1. SEROQUEL [Suspect]
     Indication: ADJUSTMENT DISORDER
     Dosage: 12.5 TO 25 MG
     Route: 048
     Dates: end: 20050518

REACTIONS (2)
  - DEATH [None]
  - DIABETES MELLITUS [None]
